FAERS Safety Report 18480001 (Version 1)
Quarter: 2020Q4

REPORT INFORMATION
  Report Type: Spontaneous
  Country: US (occurrence: US)
  Receive Date: 20201106
  Receipt Date: 20201106
  Transmission Date: 20210114
  Serious: Yes (Death, Hospitalization)
  Sender: FDA-Public Use
  Company Number: None

PATIENT
  Age: 83 Year
  Sex: Male
  Weight: 58.1 kg

DRUGS (6)
  1. CARBOPLATIN (214240) [Suspect]
     Active Substance: CARBOPLATIN
     Indication: PRODUCT USED FOR UNKNOWN INDICATION
     Dates: end: 20200826
  2. SINEMET [Concomitant]
     Active Substance: CARBIDOPA\LEVODOPA
  3. INSULIN [Concomitant]
     Active Substance: INSULIN NOS
  4. TAXOL [Suspect]
     Active Substance: PACLITAXEL
     Indication: PRODUCT USED FOR UNKNOWN INDICATION
     Dates: end: 20200826
  5. LIPITOR [Concomitant]
     Active Substance: ATORVASTATIN CALCIUM
  6. ASPIRIN. [Concomitant]
     Active Substance: ASPIRIN

REACTIONS (2)
  - Subdural haematoma [None]
  - Brain herniation [None]

NARRATIVE: CASE EVENT DATE: 20200921
